FAERS Safety Report 23993103 (Version 1)
Quarter: 2024Q2

REPORT INFORMATION
  Report Type: Spontaneous
  Country: US (occurrence: US)
  Receive Date: 20240620
  Receipt Date: 20240620
  Transmission Date: 20240716
  Serious: Yes (Other)
  Sender: FDA-Public Use
  Company Number: US-BIOGEN-2024BI01269683

PATIENT
  Age: 42 Year
  Sex: Male

DRUGS (1)
  1. QALSODY [Suspect]
     Active Substance: TOFERSEN
     Indication: Amyotrophic lateral sclerosis
     Route: 050
     Dates: start: 2023

REACTIONS (3)
  - Papilloedema [Unknown]
  - CSF red blood cell count positive [Unknown]
  - CSF protein increased [Unknown]

NARRATIVE: CASE EVENT DATE: 20240501
